FAERS Safety Report 6341501-9 (Version None)
Quarter: 2009Q3

REPORT INFORMATION
  Report Type: 
  Country: None (occurrence: None)
  Receive Date: 20090904
  Receipt Date: 20090827
  Transmission Date: 20100115
  Serious: Yes (Death)
  Sender: FDA-Public Use
  Company Number: DE-JNJFOC-20090809519

PATIENT
  Sex: Female

DRUGS (4)
  1. REOPRO [Suspect]
     Route: 042
     Dates: start: 20090818, end: 20090818
  2. REOPRO [Suspect]
     Indication: DRUG USE FOR UNKNOWN INDICATION
     Route: 042
     Dates: start: 20090818, end: 20090818
  3. GLIMEPIRIDE [Concomitant]
  4. GLUCOPHAGE [Concomitant]

REACTIONS (1)
  - DEATH [None]
